FAERS Safety Report 6783879-8 (Version None)
Quarter: 2010Q2

REPORT INFORMATION
  Report Type: 
  Country: None (occurrence: None)
  Receive Date: 20100622
  Receipt Date: 20100610
  Transmission Date: 20101027
  Serious: Yes (Life-Threatening)
  Sender: FDA-Public Use
  Company Number: FR-PFIZER INC-2010072155

PATIENT
  Age: 85 Year
  Sex: Female

DRUGS (6)
  1. ALDACTONE [Suspect]
     Dosage: 50 MG, 1X/DAY
     Route: 048
     Dates: end: 20100401
  2. HYDROXYZINE HCL [Suspect]
     Dosage: 25 MG, 3X/DAY
     Route: 048
     Dates: end: 20100401
  3. ISORYTHM [Suspect]
     Dosage: 125 MG, DAILY
     Route: 048
     Dates: end: 20100401
  4. RISPERDAL [Suspect]
     Dosage: 1 MG, 1X/DAY
     Route: 048
     Dates: end: 20100401
  5. CITALOPRAM HYDROBROMIDE [Suspect]
     Dosage: 20 MG, 1X/DAY
     Route: 048
     Dates: end: 20100401
  6. LORAZEPAM [Suspect]
     Dosage: 1 MG, 1X/DAY
     Route: 048
     Dates: end: 20100401

REACTIONS (4)
  - ELECTROCARDIOGRAM QT PROLONGED [None]
  - SYNCOPE [None]
  - VENTRICULAR EXTRASYSTOLES [None]
  - VENTRICULAR TACHYCARDIA [None]
